FAERS Safety Report 14839660 (Version 1)
Quarter: 2018Q2

REPORT INFORMATION
  Report Type: Spontaneous
  Country: DE (occurrence: DE)
  Receive Date: 20180502
  Receipt Date: 20180502
  Transmission Date: 20180711
  Serious: Yes (Death)
  Sender: FDA-Public Use
  Company Number: DE-CONCORDIA PHARMACEUTICALS INC.-E2B_00011498

PATIENT
  Age: 94 Year
  Sex: Female
  Weight: 50 kg

DRUGS (5)
  1. DIGOXIN. [Suspect]
     Active Substance: DIGOXIN
     Dosage: ADMINISTERED ON THE THIRD DAY OF THE DIGOXIN THERAPY
     Route: 048
     Dates: start: 20151208
  2. BELOK ZOK [Concomitant]
  3. LANTUS [Concomitant]
     Active Substance: INSULIN GLARGINE
  4. DIGOXIN. [Suspect]
     Active Substance: DIGOXIN
     Dosage: ADMINISTERED ON THE SECOND DAY OF THE DIGOXIN THERAPY
     Dates: start: 20151207, end: 20151207
  5. DIGOXIN. [Suspect]
     Active Substance: DIGOXIN
     Dosage: .5 MILLIGRAM DAILY; ADMINISTERED ON THE FIRST DAY OF THE DIGOXIN THERAPY; 2 AMPOULES WITH 0.25 MG WE
     Dates: start: 20151206, end: 20151206

REACTIONS (2)
  - Laboratory test abnormal [Unknown]
  - Death [Fatal]
